FAERS Safety Report 24025054 (Version 2)
Quarter: 2024Q3

REPORT INFORMATION
  Report Type: Spontaneous
  Country: US (occurrence: US)
  Receive Date: 20240628
  Receipt Date: 20240820
  Transmission Date: 20241017
  Serious: Yes (Hospitalization)
  Sender: CSL BEHRING
  Company Number: US-BEH-2024174652

PATIENT
  Age: 80 Year
  Sex: Male

DRUGS (1)
  1. HIZENTRA [Suspect]
     Active Substance: HUMAN IMMUNOGLOBULIN G
     Indication: Immunodeficiency
     Dosage: 12 G, QW
     Route: 058
     Dates: start: 202002

REACTIONS (4)
  - Gallbladder operation [Unknown]
  - Fall [Unknown]
  - Urinary tract infection [Unknown]
  - Incorrect dose administered [Unknown]
